FAERS Safety Report 14602173 (Version 1)
Quarter: 2018Q1

REPORT INFORMATION
  Report Type: Spontaneous
  Country: GB (occurrence: GB)
  Receive Date: 20180306
  Receipt Date: 20180306
  Transmission Date: 20180509
  Serious: Yes (Other)
  Sender: FDA-Public Use
  Company Number: GB-ESPERO PHARMACEUTICALS-ESP201802-000010

PATIENT
  Age: 75 Year

DRUGS (1)
  1. NITROGLYCERIN. [Suspect]
     Active Substance: NITROGLYCERIN
     Indication: COMPUTERISED TOMOGRAM
     Route: 060
     Dates: start: 20170619, end: 20170619

REACTIONS (5)
  - Confusional state [Recovered/Resolved]
  - Wrong patient received medication [Unknown]
  - Somnolence [Recovered/Resolved]
  - Disorientation [Recovered/Resolved]
  - Hyperhidrosis [Recovered/Resolved]

NARRATIVE: CASE EVENT DATE: 20170619
